FAERS Safety Report 9364632 (Version 1)
Quarter: 2013Q2

REPORT INFORMATION
  Report Type: Spontaneous
  Country: US (occurrence: US)
  Receive Date: 20130624
  Receipt Date: 20130624
  Transmission Date: 20140414
  Serious: Yes (Life-Threatening, Hospitalization)
  Sender: FDA-Public Use
  Company Number: US-MYLANLABS-2013S1012995

PATIENT
  Age: 61 Year
  Sex: Male

DRUGS (2)
  1. SUBOXONE [Suspect]
     Indication: DRUG ABUSE
     Dosage: SEVERAL 8/2MG TABS
     Route: 048
  2. METHADONE [Suspect]
     Indication: DRUG DEPENDENCE
     Route: 065

REACTIONS (13)
  - Drug withdrawal syndrome [Unknown]
  - Faecal incontinence [Unknown]
  - Urinary incontinence [Unknown]
  - Vomiting [Unknown]
  - Tachycardia [Unknown]
  - Hypertension [Unknown]
  - Delirium [Unknown]
  - Hyperglycaemia [Unknown]
  - Acidosis [Unknown]
  - Rhabdomyolysis [Unknown]
  - Pneumonia aspiration [Unknown]
  - Acute lung injury [Unknown]
  - Drug abuse [Unknown]
